FAERS Safety Report 15246658 (Version 1)
Quarter: 2018Q3

REPORT INFORMATION
  Report Type: Spontaneous
  Country: US (occurrence: US)
  Receive Date: 20180713
  Receipt Date: 20180713
  Transmission Date: 20181010
  Serious: Yes (Other)
  Sender: FDA-Public Use
  Company Number: None

PATIENT
  Age: 27 Year
  Sex: Female
  Weight: 74.84 kg

DRUGS (1)
  1. ESTRADIOL TRANSDERMAL SYSTEM [Suspect]
     Active Substance: ESTRADIOL
     Indication: ARTIFICIAL MENOPAUSE
     Dosage: ?          OTHER DOSE:1 PATCH A 7 DAYS;?
     Route: 062
     Dates: start: 20180419, end: 20180426

REACTIONS (2)
  - Product adhesion issue [None]
  - Application site irritation [None]

NARRATIVE: CASE EVENT DATE: 20180426
